FAERS Safety Report 6447432-8 (Version None)
Quarter: 2009Q4

REPORT INFORMATION
  Report Type: 
  Country: None (occurrence: None)
  Receive Date: 20091119
  Receipt Date: 20090205
  Transmission Date: 20100525
  Serious: Yes (Hospitalization)
  Sender: FDA-Public Use
  Company Number: US-AMGEN-QUU325981

PATIENT
  Sex: Female
  Weight: 64.9 kg

DRUGS (2)
  1. ENBREL [Suspect]
     Indication: RHEUMATOID ARTHRITIS
     Route: 058
     Dates: start: 20080929
  2. METHOTREXATE [Concomitant]
     Route: 048

REACTIONS (6)
  - LOCALISED OEDEMA [None]
  - LYMPHADENITIS BACTERIAL [None]
  - LYMPHADENOPATHY [None]
  - MUSCLE SPASMS [None]
  - MYALGIA [None]
  - RHEUMATOID ARTHRITIS [None]
